FAERS Safety Report 16222906 (Version 10)
Quarter: 2021Q3

REPORT INFORMATION
  Report Type: Spontaneous
  Country: US (occurrence: US)
  Receive Date: 20190422
  Receipt Date: 20210817
  Transmission Date: 20211014
  Serious: No
  Sender: FDA-Public Use
  Company Number: US-PFIZER INC-2016239965

PATIENT
  Age: 76 Year
  Sex: Female
  Weight: 35 kg

DRUGS (6)
  1. LYRICA [Suspect]
     Active Substance: PREGABALIN
     Indication: NEUROPATHY PERIPHERAL
     Dosage: 50 MG, QHS (EVERY NIGHT)
     Route: 048
  2. LYRICA [Suspect]
     Active Substance: PREGABALIN
     Indication: PAIN
     Dosage: 50 MG, TWICE A DAY
     Route: 048
  3. LYRICA [Suspect]
     Active Substance: PREGABALIN
     Dosage: 300 MG, DAILY (100 MG ONE IN MORNING AND TWO IN EVENING)
     Route: 048
  4. LYRICA [Suspect]
     Active Substance: PREGABALIN
     Dosage: 300 MG, DAILY (1 CAPSULE IN THE MORNING AND 2 CAPSULES IN EVENING)
     Route: 048
  5. LYRICA [Suspect]
     Active Substance: PREGABALIN
     Dosage: 100 MG, ONCE A DAY
     Route: 048
     Dates: start: 201904
  6. LYRICA [Suspect]
     Active Substance: PREGABALIN
     Dosage: 100 MG, ONE IN THE MORNING AND TWO CAPSULES IN THE EVENING
     Route: 048

REACTIONS (7)
  - Intentional product use issue [Unknown]
  - Malaise [Not Recovered/Not Resolved]
  - Influenza like illness [Unknown]
  - Drug effective for unapproved indication [Unknown]
  - Intentional dose omission [Unknown]
  - Restless legs syndrome [Not Recovered/Not Resolved]
  - Off label use [Unknown]

NARRATIVE: CASE EVENT DATE: 201904
